FAERS Safety Report 17806245 (Version 2)
Quarter: 2020Q4

REPORT INFORMATION
  Report Type: Spontaneous
  Country: US (occurrence: US)
  Receive Date: 20200520
  Receipt Date: 20201113
  Transmission Date: 20210113
  Serious: Yes (Death, Other)
  Sender: FDA-Public Use
  Company Number: US-ASTRAZENECA-2020SE64912

PATIENT
  Age: 21853 Day
  Sex: Male
  Weight: 110.7 kg

DRUGS (49)
  1. INSULIN [Concomitant]
     Active Substance: INSULIN NOS
     Dates: start: 20150603
  2. ONDANSETRON [Concomitant]
     Active Substance: ONDANSETRON
     Dates: start: 20131203
  3. CRESTOR [Concomitant]
     Active Substance: ROSUVASTATIN CALCIUM
     Dates: start: 20150828
  4. COMBIVENT [Concomitant]
     Active Substance: ALBUTEROL SULFATE\IPRATROPIUM BROMIDE
  5. CLINDAMYCIN. [Concomitant]
     Active Substance: CLINDAMYCIN
  6. ZOLPIDEM [Concomitant]
     Active Substance: ZOLPIDEM TARTRATE
     Dates: start: 20131113
  7. CYMBALTA [Concomitant]
     Active Substance: DULOXETINE HYDROCHLORIDE
  8. ACTOS [Concomitant]
     Active Substance: PIOGLITAZONE HYDROCHLORIDE
  9. ASPIRIN. [Concomitant]
     Active Substance: ASPIRIN
  10. NEXIUM [Suspect]
     Active Substance: ESOMEPRAZOLE MAGNESIUM
     Indication: GASTROOESOPHAGEAL REFLUX DISEASE
     Dosage: 40.0MG UNKNOWN
     Route: 048
     Dates: start: 20100423
  11. METOPROLOL. [Concomitant]
     Active Substance: METOPROLOL
  12. DILTIAZEM. [Concomitant]
     Active Substance: DILTIAZEM
  13. ENDOCET [Concomitant]
     Active Substance: ACETAMINOPHEN\OXYCODONE HYDROCHLORIDE
     Dates: start: 20100125
  14. NITROGLYCERIN. [Concomitant]
     Active Substance: NITROGLYCERIN
     Dates: start: 20100115
  15. CEPHALEXIN. [Concomitant]
     Active Substance: CEPHALEXIN
     Dates: start: 20140502
  16. GABAPENTIN. [Concomitant]
     Active Substance: GABAPENTIN
  17. NEXIUM [Suspect]
     Active Substance: ESOMEPRAZOLE MAGNESIUM
     Indication: GASTROOESOPHAGEAL REFLUX DISEASE
     Route: 048
     Dates: start: 200811, end: 201704
  18. NEXIUM [Suspect]
     Active Substance: ESOMEPRAZOLE MAGNESIUM
     Indication: GASTROOESOPHAGEAL REFLUX DISEASE
     Dosage: GENERIC40.0MG UNKNOWN
     Route: 048
     Dates: start: 20170321
  19. NIACIN. [Concomitant]
     Active Substance: NIACIN
     Dates: start: 20131111
  20. LYRICA [Concomitant]
     Active Substance: PREGABALIN
  21. DULOXETINE. [Concomitant]
     Active Substance: DULOXETINE
  22. FENTANYL. [Concomitant]
     Active Substance: FENTANYL
  23. OXYCODONE [Concomitant]
     Active Substance: OXYCODONE
  24. PLAVIX [Concomitant]
     Active Substance: CLOPIDOGREL BISULFATE
  25. AZITHROMYCIN ANHYDROUS. [Concomitant]
     Active Substance: AZITHROMYCIN ANHYDROUS
  26. VICTOZA [Concomitant]
     Active Substance: LIRAGLUTIDE
  27. HYDROCHLOROTHIAZIDE. [Concomitant]
     Active Substance: HYDROCHLOROTHIAZIDE
  28. BENZONATATE. [Concomitant]
     Active Substance: BENZONATATE
  29. NEXIUM [Suspect]
     Active Substance: ESOMEPRAZOLE MAGNESIUM
     Indication: GASTROOESOPHAGEAL REFLUX DISEASE
     Route: 048
     Dates: start: 2008, end: 2016
  30. LISINOPRIL. [Concomitant]
     Active Substance: LISINOPRIL
     Indication: HYPERTENSION
     Dates: start: 2010, end: 2017
  31. POTASSIUM CHLORIDE. [Concomitant]
     Active Substance: POTASSIUM CHLORIDE
     Dates: start: 20131108
  32. PREDNISONE. [Concomitant]
     Active Substance: PREDNISONE
  33. JANUVIA [Concomitant]
     Active Substance: SITAGLIPTIN PHOSPHATE
  34. NEXIUM [Suspect]
     Active Substance: ESOMEPRAZOLE MAGNESIUM
     Indication: GASTROOESOPHAGEAL REFLUX DISEASE
     Dosage: 40.0MG UNKNOWN
     Route: 048
     Dates: start: 20140703
  35. CLOPIDOGREL [Concomitant]
     Active Substance: CLOPIDOGREL BISULFATE
     Indication: ANTICOAGULANT THERAPY
     Dates: start: 2014, end: 2017
  36. CIPROFLOXACIN. [Concomitant]
     Active Substance: CIPROFLOXACIN
  37. LEVAQUIN [Concomitant]
     Active Substance: LEVOFLOXACIN
  38. ALBUTEROL. [Concomitant]
     Active Substance: ALBUTEROL
  39. CLONIDINE. [Concomitant]
     Active Substance: CLONIDINE
  40. ROSUVASTATIN. [Concomitant]
     Active Substance: ROSUVASTATIN
     Indication: BLOOD CHOLESTEROL INCREASED
     Dates: start: 2016, end: 2017
  41. ADVAIR HFA [Concomitant]
     Active Substance: FLUTICASONE PROPIONATE\SALMETEROL XINAFOATE
  42. FUROSEMIDE. [Concomitant]
     Active Substance: FUROSEMIDE
  43. FLUTICASONE. [Concomitant]
     Active Substance: FLUTICASONE
  44. LANTUS [Concomitant]
     Active Substance: INSULIN GLARGINE
  45. TRIMETHOPRIM. [Concomitant]
     Active Substance: TRIMETHOPRIM
  46. MORPHINE [Concomitant]
     Active Substance: MORPHINE
     Dates: start: 20140903
  47. METHADONE [Concomitant]
     Active Substance: METHADONE HYDROCHLORIDE
     Dates: start: 20130826
  48. SKELAXIN [Concomitant]
     Active Substance: METAXALONE
  49. ISOSORBIDE. [Concomitant]
     Active Substance: ISOSORBIDE

REACTIONS (5)
  - Death [Fatal]
  - Hyperkalaemia [Unknown]
  - Renal failure [Unknown]
  - Chronic kidney disease [Unknown]
  - Acute kidney injury [Unknown]

NARRATIVE: CASE EVENT DATE: 20160502
